FAERS Safety Report 4965356-X (Version None)
Quarter: 2006Q2

REPORT INFORMATION
  Report Type: 
  Country: None (occurrence: None)
  Receive Date: 20060406
  Receipt Date: 20060301
  Transmission Date: 20061013
  Serious: Yes (Other)
  Sender: FDA-Public Use
  Company Number: US-MERCK-0603USA00415

PATIENT
  Age: 60 Year
  Sex: Male
  Weight: 93 kg

DRUGS (9)
  1. VIOXX [Suspect]
     Indication: ARTHRITIS
     Route: 048
     Dates: start: 20000101, end: 20041201
  2. VIOXX [Suspect]
     Route: 048
     Dates: start: 20000101, end: 20041201
  3. MOTRIN [Concomitant]
     Route: 065
  4. VICODIN [Concomitant]
     Route: 065
  5. ALLOPURINOL [Concomitant]
     Route: 048
  6. HYDROCHLOROTHIAZIDE [Concomitant]
     Route: 048
  7. OXYCONTIN [Concomitant]
     Route: 065
  8. AVELOX [Concomitant]
     Route: 065
  9. PREDNISONE [Concomitant]
     Route: 048

REACTIONS (6)
  - AXILLARY MASS [None]
  - CEREBRAL ARTERY THROMBOSIS [None]
  - CEREBRAL DISORDER [None]
  - CEREBRAL THROMBOSIS [None]
  - PULMONARY HYPERTENSION [None]
  - SHOULDER PAIN [None]
